FAERS Safety Report 8531757-6 (Version None)
Quarter: 2012Q3

REPORT INFORMATION
  Report Type: 
  Country: None (occurrence: None)
  Receive Date: 20120723
  Receipt Date: 20120713
  Transmission Date: 20120928
  Serious: Yes (Life-Threatening, Hospitalization)
  Sender: FDA-Public Use
  Company Number: DE-TEVA-348466GER

PATIENT
  Sex: Female
  Weight: 82 kg

DRUGS (1)
  1. TAMOXIFEN CITRATE [Suspect]
     Indication: BREAST CANCER IN SITU
     Dosage: 50 MILLIGRAM;
     Route: 048
     Dates: start: 20071101

REACTIONS (2)
  - BLADDER TRANSITIONAL CELL CARCINOMA [None]
  - HAEMATURIA [None]
